FAERS Safety Report 6530410-8 (Version None)
Quarter: 2010Q1

REPORT INFORMATION
  Report Type: 
  Country: None (occurrence: None)
  Receive Date: 20100106
  Receipt Date: 20100106
  Transmission Date: 20100710
  Serious: Yes (Hospitalization)
  Sender: FDA-Public Use
  Company Number: None

PATIENT
  Age: 79 Year
  Sex: Male
  Weight: 103.8737 kg

DRUGS (2)
  1. CETUXIMAB 250 MG/M2 [Suspect]
     Indication: TRANSITIONAL CELL CARCINOMA
  2. PACLITAXEL 70 MG/M2 [Suspect]
     Indication: TRANSITIONAL CELL CARCINOMA

REACTIONS (4)
  - NAUSEA [None]
  - SINUS TACHYCARDIA [None]
  - UROSEPSIS [None]
  - VOMITING [None]
